FAERS Safety Report 25432931 (Version 1)
Quarter: 2025Q2

REPORT INFORMATION
  Report Type: Spontaneous
  Country: US (occurrence: None)
  Receive Date: 20250613
  Receipt Date: 20250613
  Transmission Date: 20250717
  Serious: No
  Sender: MDD OPERATIONS
  Company Number: US-MDD US Operations-MDD202411-004515

PATIENT
  Age: 65 Year
  Sex: Female

DRUGS (18)
  1. APOKYN [Suspect]
     Active Substance: APOMORPHINE HYDROCHLORIDE
     Indication: Parkinson^s disease
     Dates: start: 20241030
  2. APOKYN [Suspect]
     Active Substance: APOMORPHINE HYDROCHLORIDE
     Indication: Dyskinesia
  3. APOKYN [Suspect]
     Active Substance: APOMORPHINE HYDROCHLORIDE
     Indication: On and off phenomenon
     Dosage: 3ML CARTRIDGE 1 EA CART
     Route: 058
  4. CREXONT [Suspect]
     Active Substance: CARBIDOPA\LEVODOPA
     Indication: Product used for unknown indication
     Route: 048
  5. GOCOVRI [Concomitant]
     Active Substance: AMANTADINE
  6. PRAMIPEXOLE [Concomitant]
     Active Substance: PRAMIPEXOLE
  7. GABAPENTIN [Concomitant]
     Active Substance: GABAPENTIN
  8. DULOXETINE [Concomitant]
     Active Substance: DULOXETINE
  9. CELECOXIB [Concomitant]
     Active Substance: CELECOXIB
  10. THIAMINE HYDROCHLORIDE [Concomitant]
     Active Substance: THIAMINE HYDROCHLORIDE
  11. Vitamin D-400 [Concomitant]
  12. MAGNESIUM [Concomitant]
     Active Substance: MAGNESIUM
  13. CALCIUM [Concomitant]
     Active Substance: CALCIUM
  14. BACLOFEN [Concomitant]
     Active Substance: BACLOFEN
  15. DULOXETINE HYDROCHLORIDE [Concomitant]
     Active Substance: DULOXETINE HYDROCHLORIDE
  16. PRAMIPEXOLE DIHYDROCHLORIDE [Concomitant]
     Active Substance: PRAMIPEXOLE DIHYDROCHLORIDE
  17. AMANTADINE [Concomitant]
     Active Substance: AMANTADINE
  18. CARBIDOPA\LEVODOPA [Concomitant]
     Active Substance: CARBIDOPA\LEVODOPA

REACTIONS (5)
  - Abdominal discomfort [Unknown]
  - Injection site erythema [Not Recovered/Not Resolved]
  - Injection site pruritus [Not Recovered/Not Resolved]
  - Nausea [Unknown]
  - Vomiting [Unknown]

NARRATIVE: CASE EVENT DATE: 20241101
